FAERS Safety Report 12549204 (Version 1)
Quarter: 2016Q3

REPORT INFORMATION
  Report Type: Spontaneous
  Country: PL (occurrence: PL)
  Receive Date: 20160712
  Receipt Date: 20160712
  Transmission Date: 20161109
  Serious: Yes (Other)
  Sender: FDA-Public Use
  Company Number: PHHY2016PL093695

PATIENT
  Age: 63 Year
  Sex: Male

DRUGS (2)
  1. AFINITOR [Suspect]
     Active Substance: EVEROLIMUS
     Indication: RENAL CELL CARCINOMA
     Dosage: 10 MG, QD (DAILY)
     Route: 065
     Dates: start: 201306
  2. AFINITOR [Suspect]
     Active Substance: EVEROLIMUS
     Dosage: 10 MG, QD
     Route: 065

REACTIONS (6)
  - Colorectal adenocarcinoma [Unknown]
  - Second primary malignancy [Unknown]
  - Toxicity to various agents [Unknown]
  - Pneumonitis [Recovering/Resolving]
  - Gastrointestinal wall thickening [Unknown]
  - Anaemia [Unknown]

NARRATIVE: CASE EVENT DATE: 201603
